FAERS Safety Report 7776338-7 (Version None)
Quarter: 2011Q3

REPORT INFORMATION
  Report Type: 
  Country: None (occurrence: None)
  Receive Date: 20110926
  Receipt Date: 20110915
  Transmission Date: 20111222
  Serious: Yes (Other)
  Sender: FDA-Public Use
  Company Number: US-JNJFOC-20110908409

PATIENT
  Age: 78 Year
  Sex: Male

DRUGS (2)
  1. REOPRO [Suspect]
     Indication: MYOCARDIAL INFARCTION
     Route: 040
  2. HEPARIN [Concomitant]
     Route: 065

REACTIONS (3)
  - HAEMOPTYSIS [None]
  - PYREXIA [None]
  - DYSPNOEA [None]
